FAERS Safety Report 12361045 (Version 2)
Quarter: 2019Q4

REPORT INFORMATION
  Report Type: Spontaneous
  Country: US (occurrence: US)
  Receive Date: 20160512
  Receipt Date: 20191216
  Transmission Date: 20200122
  Serious: No
  Sender: FDA-Public Use
  Company Number: US-UCBSA-2015027716

PATIENT
  Age: 27 Year
  Sex: Male
  Weight: 90.71 kg

DRUGS (2)
  1. CIMZIA [Suspect]
     Active Substance: CERTOLIZUMAB PEGOL
     Indication: RHEUMATOID ARTHRITIS
     Dosage: 400 MG, UNK
     Route: 058
     Dates: start: 20150820, end: 201508
  2. KINERET [Concomitant]
     Active Substance: ANAKINRA
     Indication: RHEUMATOID ARTHRITIS
     Dosage: UNK, ONCE DAILY (QD) FOR 10 YEARS
     Dates: end: 20150819

REACTIONS (4)
  - Rheumatoid arthritis [Not Recovered/Not Resolved]
  - Oropharyngeal pain [Recovering/Resolving]
  - Decreased appetite [Not Recovered/Not Resolved]
  - Influenza like illness [Recovering/Resolving]

NARRATIVE: CASE EVENT DATE: 201508
